FAERS Safety Report 20720319 (Version 1)
Quarter: 2022Q2

REPORT INFORMATION
  Report Type: Spontaneous
  Country: US (occurrence: US)
  Receive Date: 20220418
  Receipt Date: 20220418
  Transmission Date: 20220720
  Serious: No
  Sender: FDA-Public Use
  Company Number: US-NOVARTISTESTPH-NVSC2022US089415

PATIENT
  Sex: Male

DRUGS (3)
  1. TIMOLOL MALEATE [Suspect]
     Active Substance: TIMOLOL MALEATE
     Indication: Product used for unknown indication
     Dosage: UNK UNK, BID (15 ML SOLN)
     Route: 065
  2. PANTOPRAZOLE [Concomitant]
     Active Substance: PANTOPRAZOLE
     Indication: Product used for unknown indication
     Dosage: UNK, BID
     Route: 065
  3. AMLODIPINE [Concomitant]
     Active Substance: AMLODIPINE BESYLATE
     Indication: Product used for unknown indication
     Dosage: UNK, BID
     Route: 065

REACTIONS (10)
  - Eye swelling [Unknown]
  - Oropharyngeal pain [Unknown]
  - Throat irritation [Unknown]
  - Tonsillolith [Unknown]
  - Wrong technique in product usage process [Unknown]
  - Thermal burn [Unknown]
  - Parosmia [Unknown]
  - Pharyngeal erythema [Unknown]
  - Eye irritation [Unknown]
  - Dizziness [Unknown]
